FAERS Safety Report 10989811 (Version 1)
Quarter: 2015Q2

REPORT INFORMATION
  Report Type: Spontaneous
  Country: JP (occurrence: JP)
  Receive Date: 20150406
  Receipt Date: 20150406
  Transmission Date: 20150821
  Serious: Yes (Death, Other)
  Sender: FDA-Public Use
  Company Number: JP-CIPLA LTD.-2015JP02576

PATIENT

DRUGS (6)
  1. BEVACIZUMAB [Suspect]
     Active Substance: BEVACIZUMAB
     Dosage: 15 MG/KG MAINTENANCE CHEMOTHERAPY OF SIX CYCLES
  2. ERLOTINIB [Suspect]
     Active Substance: ERLOTINIB
     Dosage: 150 MG MAINTENANCE CHEMOTHERAPY OF SIX CYCLES
  3. BEVACIZUMAB [Suspect]
     Active Substance: BEVACIZUMAB
     Indication: MALIGNANT NEOPLASM OF UNKNOWN PRIMARY SITE
     Dosage: 15 MG/KG,FIVE CYCLES
  4. ERLOTINIB [Suspect]
     Active Substance: ERLOTINIB
     Indication: MALIGNANT NEOPLASM OF UNKNOWN PRIMARY SITE
     Dosage: 150 MG,FIVE CYCLES
  5. CARBOPLATIN. [Suspect]
     Active Substance: CARBOPLATIN
     Indication: MALIGNANT NEOPLASM OF UNKNOWN PRIMARY SITE
     Dosage: AUC 6 FIVE CYCLES
  6. PACLITAXEL. [Suspect]
     Active Substance: PACLITAXEL
     Indication: MALIGNANT NEOPLASM OF UNKNOWN PRIMARY SITE
     Dosage: 175 MG/M2,FIVE CYCLES

REACTIONS (10)
  - Dysgeusia [Unknown]
  - VIIth nerve paralysis [Unknown]
  - Disease progression [Unknown]
  - Malignant neoplasm of unknown primary site [Fatal]
  - Rash [Unknown]
  - Neuropathy peripheral [Recovering/Resolving]
  - Stomatitis [Unknown]
  - Lymphadenopathy [Unknown]
  - Jugular vein distension [None]
  - Alanine aminotransferase increased [Unknown]
